FAERS Safety Report 21170615 (Version 1)
Quarter: 2022Q3

REPORT INFORMATION
  Report Type: Spontaneous
  Country: US (occurrence: None)
  Receive Date: 20220804
  Receipt Date: 20220804
  Transmission Date: 20221026
  Serious: Yes (Hospitalization)
  Sender: FDA-Public Use
  Company Number: US-Unichem Pharmaceuticals (USA) Inc-UCM202206-000522

PATIENT
  Age: 64 Year
  Sex: Female
  Weight: 58.96 kg

DRUGS (3)
  1. ZONISAMIDE [Suspect]
     Active Substance: ZONISAMIDE
     Indication: Seizure
  2. ZONISAMIDE [Suspect]
     Active Substance: ZONISAMIDE
  3. Caprol [Concomitant]
     Indication: Product used for unknown indication
     Dosage: UNKNOWN

REACTIONS (2)
  - Epilepsy [Unknown]
  - Drug ineffective [Unknown]
